APPROVED DRUG PRODUCT: BECONASE AQ
Active Ingredient: BECLOMETHASONE DIPROPIONATE MONOHYDRATE
Strength: EQ 0.042MG DIPROP/SPRAY
Dosage Form/Route: SPRAY, METERED;NASAL
Application: N019389 | Product #001
Applicant: GLAXOSMITHKLINE
Approved: Jul 27, 1987 | RLD: Yes | RS: No | Type: DISCN